FAERS Safety Report 7313864-9 (Version None)
Quarter: 2011Q1

REPORT INFORMATION
  Report Type: 
  Country: None (occurrence: None)
  Receive Date: 20110216
  Receipt Date: 20110216
  Transmission Date: 20110831
  Serious: Yes (Hospitalization)
  Sender: FDA-Public Use
  Company Number: None

PATIENT
  Age: 38 Year
  Sex: Male
  Weight: 95.2554 kg

DRUGS (3)
  1. ZOSYN [Suspect]
  2. ZOSYN [Suspect]
     Indication: PSEUDOMONAS INFECTION
     Dosage: 4.5G Q8HR IV
     Route: 042
     Dates: start: 20110128, end: 20110214
  3. ZOSYN [Suspect]
     Indication: SINUSITIS
     Dosage: 4.5G Q8HR IV
     Route: 042
     Dates: start: 20110128, end: 20110214

REACTIONS (4)
  - NEUTROPENIA [None]
  - PYREXIA [None]
  - LIVER FUNCTION TEST ABNORMAL [None]
  - CHILLS [None]
